FAERS Safety Report 24451635 (Version 1)
Quarter: 2024Q4

REPORT INFORMATION
  Report Type: Spontaneous
  Country: US (occurrence: US)
  Receive Date: 20241017
  Receipt Date: 20241017
  Transmission Date: 20250115
  Serious: Yes (Other)
  Sender: BRECKENRIDGE PHARMACEUTICAL, INC.
  Company Number: US-Breckenridge Pharmaceutical, Inc.-2163249

PATIENT
  Age: 67 Year
  Sex: Female
  Weight: 100 kg

DRUGS (1)
  1. OXCARBAZEPINE [Suspect]
     Active Substance: OXCARBAZEPINE
     Indication: Epilepsy

REACTIONS (12)
  - Therapeutic product ineffective [Not Recovered/Not Resolved]
  - Dysarthria [Unknown]
  - Hypoaesthesia oral [Unknown]
  - Abnormal weight gain [Not Recovered/Not Resolved]
  - Panic attack [Unknown]
  - Loss of consciousness [Unknown]
  - Sleep disorder [Not Recovered/Not Resolved]
  - Headache [Not Recovered/Not Resolved]
  - Electric shock sensation [Not Recovered/Not Resolved]
  - Mood altered [Unknown]
  - Anger [Recovered/Resolved]
  - Suicidal ideation [Recovered/Resolved]
